FAERS Safety Report 8483443-9 (Version None)
Quarter: 2012Q3

REPORT INFORMATION
  Report Type: 
  Country: None (occurrence: None)
  Receive Date: 20120702
  Receipt Date: 20120622
  Transmission Date: 20120928
  Serious: Yes (Hospitalization)
  Sender: FDA-Public Use
  Company Number: CA-ABBOTT-12P-028-0946147-00

PATIENT
  Sex: Female
  Weight: 37.41 kg

DRUGS (2)
  1. HUMIRA [Suspect]
     Indication: CROHN'S DISEASE
     Dosage: UNKNOWN
     Route: 058
     Dates: start: 20100528
  2. HUMIRA [Suspect]
     Indication: SUBILEUS

REACTIONS (7)
  - SUBILEUS [None]
  - VOMITING [None]
  - GASTROINTESTINAL OEDEMA [None]
  - INTESTINAL MUCOSAL HYPERTROPHY [None]
  - ABSCESS INTESTINAL [None]
  - ILEAL STENOSIS [None]
  - CROHN'S DISEASE [None]
